FAERS Safety Report 7180401-1 (Version None)
Quarter: 2010Q4

REPORT INFORMATION
  Report Type: 
  Country: None (occurrence: None)
  Receive Date: 20101221
  Receipt Date: 20101214
  Transmission Date: 20110411
  Serious: Yes (Other)
  Sender: FDA-Public Use
  Company Number: B0686184A

PATIENT
  Sex: Male

DRUGS (10)
  1. SERETIDE [Suspect]
     Indication: ASTHMA
     Dosage: 1000MCG PER DAY
     Route: 055
     Dates: start: 20100901
  2. SINGULAIR [Concomitant]
     Route: 048
  3. MUCOSOLVAN [Concomitant]
     Route: 048
  4. CORINAEL [Concomitant]
     Route: 048
  5. VERAPAMIL HCL [Concomitant]
     Route: 065
  6. LOXOPROFEN SODIUM [Concomitant]
     Route: 065
  7. LIMAPROST [Concomitant]
     Route: 048
  8. MUCOSTA [Concomitant]
     Route: 048
  9. TAMSULOSIN HCL [Concomitant]
     Route: 048
  10. CLARITHROMYCIN [Concomitant]
     Route: 048

REACTIONS (3)
  - FURUNCLE [None]
  - GLOSSITIS [None]
  - TONGUE NEOPLASM [None]
